FAERS Safety Report 8816368 (Version 1)
Quarter: 2012Q4

REPORT INFORMATION
  Report Type: Spontaneous
  Country: US (occurrence: None)
  Receive Date: 20120928
  Receipt Date: 20120928
  Transmission Date: 20130627
  Serious: Yes (Other)
  Sender: FDA-Public Use
  Company Number: None

PATIENT
  Sex: Female
  Weight: 83.92 kg

DRUGS (1)
  1. PRAVASTATIN SODIUM [Suspect]
     Indication: HIGH CHOLESTEROL
     Dates: start: 201105, end: 201209

REACTIONS (3)
  - Muscle spasms [None]
  - Pain in extremity [None]
  - Fatigue [None]
